FAERS Safety Report 22970093 (Version 2)
Quarter: 2023Q4

REPORT INFORMATION
  Report Type: Spontaneous
  Country: ES (occurrence: ES)
  Receive Date: 20230922
  Receipt Date: 20231222
  Transmission Date: 20240110
  Serious: Yes (Hospitalization)
  Sender: FDA-Public Use
  Company Number: ES-TERSERA THERAPEUTICS LLC-2023TRS004515

PATIENT

DRUGS (12)
  1. PRIALT [Interacting]
     Active Substance: ZICONOTIDE ACETATE
     Indication: Juvenile idiopathic arthritis
     Dosage: 1 MICROGRAM, EVERY 24 HOURS
     Route: 037
     Dates: start: 20221214, end: 20230131
  2. PRIALT [Interacting]
     Active Substance: ZICONOTIDE ACETATE
     Dosage: 2 MICROGRAM, EVERY 24 HOURS
     Dates: start: 20230201, end: 20230331
  3. PRIALT [Interacting]
     Active Substance: ZICONOTIDE ACETATE
     Dosage: 1.9 MICROGRAM, EVERY 24 HOURS
     Route: 037
     Dates: start: 20230331, end: 20230530
  4. PRIALT [Interacting]
     Active Substance: ZICONOTIDE ACETATE
     Dosage: 2.16 MICROGRAM, EVERY 24 HOURS
     Route: 037
     Dates: start: 20230531, end: 20230615
  5. PRIALT [Interacting]
     Active Substance: ZICONOTIDE ACETATE
     Dosage: 1.48 MICROGRAM, EVERY 24 HOURS
     Route: 037
     Dates: start: 20230616, end: 20230629
  6. OXYCODONE [Suspect]
     Active Substance: OXYCODONE
     Indication: Juvenile idiopathic arthritis
     Dosage: 10 MG
     Route: 048
     Dates: start: 20220225, end: 20230626
  7. RIVOTRIL [Suspect]
     Active Substance: CLONAZEPAM
     Indication: Anxiety
     Dosage: 0.5 MG, TID (EVERY 8 HOURS)
     Route: 048
     Dates: start: 2023, end: 20230629
  8. RIVOTRIL [Suspect]
     Active Substance: CLONAZEPAM
     Indication: Depression
  9. LORMETAZEPAM [Suspect]
     Active Substance: LORMETAZEPAM
     Indication: Anxiety
     Dosage: 2 MG, QD
     Route: 048
     Dates: start: 20230610, end: 20230626
  10. LORMETAZEPAM [Suspect]
     Active Substance: LORMETAZEPAM
     Indication: Depression
  11. MORPHINE [Suspect]
     Active Substance: MORPHINE
     Indication: Juvenile idiopathic arthritis
     Dosage: 0.095 MG, QD (EVERY 24 HOURS)
     Route: 037
     Dates: start: 20230331, end: 20230615
  12. MORPHINE [Suspect]
     Active Substance: MORPHINE
     Dosage: 1.8 MG, QD (EVERY 24 HOURS)
     Route: 037
     Dates: start: 20230616

REACTIONS (3)
  - Encephalopathy [Recovered/Resolved]
  - Confusional state [Recovered/Resolved]
  - Off label use [Recovered/Resolved]

NARRATIVE: CASE EVENT DATE: 20230616
